FAERS Safety Report 6674072-8 (Version None)
Quarter: 2010Q2

REPORT INFORMATION
  Report Type: 
  Country: None (occurrence: None)
  Receive Date: 20100409
  Receipt Date: 20100326
  Transmission Date: 20101027
  Serious: Yes (Other)
  Sender: FDA-Public Use
  Company Number: BE-RANBAXY-2010RR-32418

PATIENT
  Age: 38 Year
  Sex: Female

DRUGS (5)
  1. IBUPROFEN [Suspect]
     Indication: INFLUENZA
     Dosage: 600 MG, UNK
     Dates: end: 20060801
  2. IBUPROFEN [Suspect]
     Dosage: 400 MG, BID
  3. AVONEX [Concomitant]
     Dosage: UNK
     Route: 030
     Dates: end: 20060801
  4. ALPRAZOLAM [Concomitant]
     Indication: ANXIETY
     Dosage: 0.5 MG, UNK
  5. COPAXONE [Concomitant]
     Dosage: UNK
     Dates: start: 20061001

REACTIONS (1)
  - HEPATIC FUNCTION ABNORMAL [None]
